FAERS Safety Report 26206208 (Version 1)
Quarter: 2025Q4

REPORT INFORMATION
  Report Type: Spontaneous
  Country: EU (occurrence: EU)
  Receive Date: 20251229
  Receipt Date: 20251229
  Transmission Date: 20260118
  Serious: Yes (Other)
  Sender: ROCHE
  Company Number: EU-ROCHE-10000468527

PATIENT
  Age: 8 Month
  Sex: Male

DRUGS (10)
  1. RITUXIMAB [Suspect]
     Active Substance: RITUXIMAB
     Indication: Prophylaxis against transplant rejection
  2. TREOSULFAN [Suspect]
     Active Substance: TREOSULFAN
     Indication: Prophylaxis against transplant rejection
  3. FLUDARABINE [Suspect]
     Active Substance: FLUDARABINE PHOSPHATE
     Indication: Prophylaxis against transplant rejection
  4. GRAFALON [Suspect]
     Active Substance: LAPINE T-LYMPHOCYTE IMMUNE GLOBULIN
     Indication: Prophylaxis against transplant rejection
  5. METHYLPREDNISOLONE [Suspect]
     Active Substance: METHYLPREDNISOLONE
     Indication: Immunodeficiency
  6. CYCLOSPORINE [Suspect]
     Active Substance: CYCLOSPORINE
     Indication: Immunodeficiency
  7. PREDNISOLONE [Concomitant]
     Active Substance: PREDNISOLONE
  8. DARATUMUMAB [Concomitant]
     Active Substance: DARATUMUMAB
  9. SIROLIMUS [Concomitant]
     Active Substance: SIROLIMUS
  10. ABATACEPT [Concomitant]
     Active Substance: ABATACEPT

REACTIONS (2)
  - Retinal haemorrhage [Recovering/Resolving]
  - Cytomegalovirus chorioretinitis [Recovering/Resolving]
